FAERS Safety Report 10945034 (Version 1)
Quarter: 2015Q1

REPORT INFORMATION
  Report Type: Spontaneous
  Country: GB (occurrence: None)
  Receive Date: 20150318
  Receipt Date: 20150318
  Transmission Date: 20150721
  Serious: Yes (Disabling)
  Sender: FDA-Public Use
  Company Number: 278332

PATIENT
  Age: 74 Year
  Sex: Female

DRUGS (24)
  1. PACLITAXEL. [Suspect]
     Active Substance: PACLITAXEL
     Indication: HER-2 POSITIVE BREAST CANCER
     Dosage: 126 MG MILLIGRAM INTRAVENOUS (NOT OTHERWISE SPECIFIED)?
     Route: 042
     Dates: start: 20131129
  2. AMITRIPTYLINE [Concomitant]
     Active Substance: AMITRIPTYLINE
  3. MEBEVERINE HYDROHCLORIDE [Concomitant]
  4. HYDROCORTISONE. [Concomitant]
     Active Substance: HYDROCORTISONE
  5. GLICLAZIDE [Concomitant]
     Active Substance: GLICLAZIDE
  6. LANSOPRAZOLE. [Concomitant]
     Active Substance: LANSOPRAZOLE
  7. NICORANDIL [Concomitant]
     Active Substance: NICORANDIL
  8. CHLORPHENAMINE MALEATE [Concomitant]
     Active Substance: CHLORPHENIRAMINE MALEATE
  9. CHLORPHENIRAMINE [Concomitant]
     Active Substance: CHLORPHENIRAMINE
  10. CROTAMITOIN [Concomitant]
  11. HUMAN INSULIN [Concomitant]
     Active Substance: INSULIN HUMAN
  12. TRASTUZUMAB [Suspect]
     Active Substance: TRASTUZUMAB
     Indication: HER-2 POSITIVE BREAST CANCER
     Dosage: 8 MG/KG MILLIGRAM/KILOGRAM (1 TOTAL) INTRAVENOUS (NOT OTHERWISE SPECIFIED)
     Route: 042
     Dates: start: 20131129, end: 20131129
  13. RANITIDINE [Concomitant]
     Active Substance: RANITIDINE\RANITIDINE HYDROCHLORIDE
  14. LIRAGLUTIDE [Concomitant]
     Active Substance: LIRAGLUTIDE
  15. PERTUZUMAB [Suspect]
     Active Substance: PERTUZUMAB
     Indication: HER-2 POSITIVE BREAST CANCER
     Route: 042
     Dates: start: 20131129, end: 20131129
  16. CODEINE PHOSPHATE [Concomitant]
     Active Substance: CODEINE PHOSPHATE
  17. PEPPERMINT OIL [Concomitant]
     Active Substance: PEPPERMINT OIL
  18. RAMIPRIL. [Concomitant]
     Active Substance: RAMIPRIL
  19. ROSUVASTATIN [Concomitant]
     Active Substance: ROSUVASTATIN
  20. ASPIRIN. [Concomitant]
     Active Substance: ASPIRIN
  21. ATENOLOL. [Concomitant]
     Active Substance: ATENOLOL
  22. CODEINE PHOSPHATE W/PARACETAMOL [Concomitant]
     Active Substance: ACETAMINOPHEN\CODEINE PHOSPHATE
  23. LOPERAMIDE [Concomitant]
     Active Substance: LOPERAMIDE
  24. POTASSIUM CHLORIDE. [Concomitant]
     Active Substance: POTASSIUM CHLORIDE

REACTIONS (2)
  - Crohn^s disease [None]
  - Enteritis [None]

NARRATIVE: CASE EVENT DATE: 20150121
